FAERS Safety Report 13905861 (Version 3)
Quarter: 2017Q3

REPORT INFORMATION
  Report Type: Spontaneous
  Country: US (occurrence: US)
  Receive Date: 20170825
  Receipt Date: 20170912
  Transmission Date: 20171127
  Serious: No
  Sender: FDA-Public Use
  Company Number: US-GLAXOSMITHKLINE-US2017131134

PATIENT
  Age: 86 Year
  Sex: Female

DRUGS (2)
  1. ADVAIR DISKUS [Suspect]
     Active Substance: FLUTICASONE PROPIONATE\SALMETEROL XINAFOATE
     Indication: COUGH
  2. ADVAIR DISKUS [Suspect]
     Active Substance: FLUTICASONE PROPIONATE\SALMETEROL XINAFOATE
     Indication: CHRONIC OBSTRUCTIVE PULMONARY DISEASE
     Dosage: 1 PUFF(S), BID
     Route: 055
     Dates: start: 20170815

REACTIONS (6)
  - Wrong technique in device usage process [Unknown]
  - Muscle spasms [Unknown]
  - Sensory disturbance [Unknown]
  - Wrong technique in product usage process [Unknown]
  - Nasal discomfort [Unknown]
  - Underdose [Unknown]

NARRATIVE: CASE EVENT DATE: 20170815
